FAERS Safety Report 11806182 (Version 1)
Quarter: 2015Q4

REPORT INFORMATION
  Report Type: Spontaneous
  Country: US (occurrence: US)
  Receive Date: 20151207
  Receipt Date: 20151207
  Transmission Date: 20160305
  Serious: No
  Sender: FDA-Public Use
  Company Number: US-HOSPIRA-2650390

PATIENT
  Age: 72 Year
  Sex: Female
  Weight: 39.8 kg

DRUGS (1)
  1. MORPHINE SULPHATE [Suspect]
     Active Substance: MORPHINE SULFATE
     Indication: PAIN MANAGEMENT
     Dosage: Q 6 AM, VIA PCA PUMP
     Route: 042
     Dates: start: 20141120

REACTIONS (2)
  - Poor quality drug administered [Unknown]
  - Product contamination physical [Unknown]

NARRATIVE: CASE EVENT DATE: 20141124
